FAERS Safety Report 5024077-8 (Version None)
Quarter: 2006Q2

REPORT INFORMATION
  Report Type: 
  Country: None (occurrence: None)
  Receive Date: 20060607
  Receipt Date: 20060524
  Transmission Date: 20061013
  Serious: Yes (Hospitalization)
  Sender: FDA-Public Use
  Company Number: 2006067998

PATIENT
  Age: 57 Year
  Sex: Female
  Weight: 68.0396 kg

DRUGS (8)
  1. DETROL LA [Suspect]
     Indication: URINARY INCONTINENCE
     Dosage: UNKNOWN (1 IN 1 D);
     Dates: start: 20010101
  2. TEGRETOL [Suspect]
     Indication: CONVULSION
  3. RISPERDAL [Concomitant]
  4. ZANTAC [Concomitant]
  5. IBUPROFEN [Concomitant]
  6. SINEMET [Concomitant]
  7. TRILEPTAL [Concomitant]
  8. LYRICA [Concomitant]

REACTIONS (11)
  - ARTHRALGIA [None]
  - BACK PAIN [None]
  - BLADDER DISORDER [None]
  - CEREBROVASCULAR ACCIDENT [None]
  - DIURETIC EFFECT [None]
  - DRUG INTERACTION [None]
  - GASTRIC DISORDER [None]
  - HYPOKINESIA [None]
  - PHARMACEUTICAL PRODUCT COMPLAINT [None]
  - POOR QUALITY DRUG ADMINISTERED [None]
  - WHEELCHAIR USER [None]
